FAERS Safety Report 14328662 (Version 1)
Quarter: 2017Q4

REPORT INFORMATION
  Report Type: Spontaneous
  Country: JP (occurrence: JP)
  Receive Date: 20171227
  Receipt Date: 20171227
  Transmission Date: 20180321
  Serious: Yes (Death, Life-Threatening, Hospitalization)
  Sender: FDA-Public Use
  Company Number: JP-BAYER-2017-152994

PATIENT
  Age: 73 Year
  Sex: Male
  Weight: 57.8 kg

DRUGS (5)
  1. URINORM [Suspect]
     Active Substance: BENZBROMARONE
     Indication: HYPERURICAEMIA
     Dosage: DAILY DOSE 25 MG
     Route: 048
     Dates: start: 20170704, end: 20170718
  2. KALIMATE [Concomitant]
     Active Substance: CALCIUM POLYSTYRENE SULFONATE
     Indication: HYPERKALAEMIA
     Dosage: DAILY DOSE 15 G
     Route: 048
     Dates: start: 20170614
  3. ALDACTONE A [Concomitant]
     Active Substance: SPIRONOLACTONE
     Indication: POLYURIA
     Dosage: DAILY DOSE 25 MG
     Route: 048
     Dates: start: 20170529
  4. NEXAVAR [Suspect]
     Active Substance: SORAFENIB
     Indication: HEPATOCELLULAR CARCINOMA
     Dosage: DAILY DOSE 400 MG
     Route: 048
     Dates: start: 20170609, end: 20170718
  5. LASIX [Concomitant]
     Active Substance: FUROSEMIDE
     Indication: POLYURIA
     Dosage: DAILY DOSE 20 MG
     Route: 048
     Dates: start: 20170529

REACTIONS (2)
  - Hepatic function abnormal [Recovering/Resolving]
  - Acute kidney injury [Recovering/Resolving]

NARRATIVE: CASE EVENT DATE: 20170718
